FAERS Safety Report 10448754 (Version 1)
Quarter: 2014Q3

REPORT INFORMATION
  Report Type: Spontaneous
  Country: US (occurrence: US)
  Receive Date: 20140912
  Receipt Date: 20140912
  Transmission Date: 20150326
  Serious: No
  Sender: FDA-Public Use
  Company Number: US-AMGEN INC.-USASP2014068557

PATIENT
  Age: 30 Year
  Sex: Female

DRUGS (3)
  1. METHOTREXATE [Concomitant]
     Active Substance: METHOTREXATE
     Dosage: TWO 2.5 MILLIGRAM TABLETS ONCE IN FIRST WEEK THEN, THREE 2.5 MILLIGRAM TABLETS ONCE WEEKLY
     Dates: start: 20140902
  2. ENBREL [Suspect]
     Active Substance: ETANERCEPT
     Indication: PSORIATIC ARTHROPATHY
     Dosage: TWO 50 MILLIGRAM DOSES TWICE WEEKLY
     Route: 065
     Dates: start: 20140902
  3. ENBREL [Suspect]
     Active Substance: ETANERCEPT
     Indication: PSORIASIS

REACTIONS (3)
  - Injection site reaction [Not Recovered/Not Resolved]
  - Dizziness [Recovered/Resolved]
  - Injection site bruising [Not Recovered/Not Resolved]

NARRATIVE: CASE EVENT DATE: 20140905
